FAERS Safety Report 8060547-6 (Version None)
Quarter: 2012Q1

REPORT INFORMATION
  Report Type: 
  Country: None (occurrence: None)
  Receive Date: 20120120
  Receipt Date: 20120113
  Transmission Date: 20120608
  Serious: Yes (Other)
  Sender: FDA-Public Use
  Company Number: PHHY2012BR003491

PATIENT
  Sex: Male

DRUGS (2)
  1. ONBREZ [Suspect]
     Dosage: 150 UG, UNK
  2. ONBREZ [Suspect]
     Dosage: 300 UG, UNK

REACTIONS (2)
  - LUNG NEOPLASM MALIGNANT [None]
  - CONDITION AGGRAVATED [None]
